FAERS Safety Report 6572751-4 (Version None)
Quarter: 2010Q1

REPORT INFORMATION
  Report Type: 
  Country: None (occurrence: None)
  Receive Date: 20100205
  Receipt Date: 20100202
  Transmission Date: 20100710
  Serious: Yes (Hospitalization)
  Sender: FDA-Public Use
  Company Number: PHHO2010BE01920

PATIENT
  Sex: Female

DRUGS (1)
  1. CERTICAN [Suspect]
     Indication: RENAL TRANSPLANT
     Dosage: 1.5MG/DAY
     Route: 048
     Dates: start: 20061222, end: 20070103

REACTIONS (3)
  - CARDIAC FAILURE [None]
  - DYSPNOEA [None]
  - KIDNEY TRANSPLANT REJECTION [None]
